FAERS Safety Report 4604587-5 (Version None)
Quarter: 2005Q2

REPORT INFORMATION
  Report Type: 
  Country: None (occurrence: None)
  Receive Date: 20050223
  Receipt Date: 20041221
  Transmission Date: 20051028
  Serious: No
  Sender: FDA-Public Use
  Company Number: PHEH2004US13524

PATIENT
  Age: 80 Year
  Sex: Female

DRUGS (1)
  1. ZELNORM [Suspect]
     Indication: INFLAMMATORY BOWEL DISEASE
     Dosage: 2 MG, TID, UNK
     Dates: start: 20040309, end: 20041208

REACTIONS (6)
  - BACK PAIN [None]
  - BREAST PAIN [None]
  - DIZZINESS [None]
  - FLUSHING [None]
  - HYPERHIDROSIS [None]
  - PAIN IN EXTREMITY [None]
